FAERS Safety Report 5656186-4 (Version None)
Quarter: 2008Q1

REPORT INFORMATION
  Report Type: 
  Country: None (occurrence: None)
  Receive Date: 20080305
  Receipt Date: 20080219
  Transmission Date: 20080703
  Serious: Yes (Other)
  Sender: FDA-Public Use
  Company Number: 2008S1002824

PATIENT
  Age: 14 Year
  Sex: Male

DRUGS (2)
  1. ERYTHROMYCIN [Suspect]
     Indication: ACNE
     Dosage: 500 MG; TWICE A DAY; ORAL
     Route: 048
     Dates: start: 20070801, end: 20071011
  2. PIZOTIFEN (PIZOTIFEN) [Suspect]
     Indication: MIGRAINE
     Dosage: 1.5 MG; DAILY; ORAL
     Route: 048
     Dates: end: 20071011

REACTIONS (5)
  - DIZZINESS [None]
  - HYPERHIDROSIS [None]
  - LOSS OF CONSCIOUSNESS [None]
  - NAUSEA [None]
  - PALPITATIONS [None]
